FAERS Safety Report 19783243 (Version 1)
Quarter: 2021Q3

REPORT INFORMATION
  Report Type: Spontaneous
  Country: DE (occurrence: DE)
  Receive Date: 20210903
  Receipt Date: 20210903
  Transmission Date: 20211014
  Serious: Yes (Other)
  Sender: FDA-Public Use
  Company Number: DE-BAUSCH-BL-2021-029464

PATIENT
  Age: 19 Year
  Sex: Male
  Weight: 65 kg

DRUGS (1)
  1. OFLOXACIN AUGENTROPFEN [Suspect]
     Active Substance: OFLOXACIN
     Indication: RETINAL INJURY
     Dosage: 1 TROPFEN 5X TAG
     Route: 047
     Dates: start: 20210717, end: 20210725

REACTIONS (2)
  - Ligament rupture [Not Recovered/Not Resolved]
  - Muscle rupture [Not Recovered/Not Resolved]

NARRATIVE: CASE EVENT DATE: 20210817
